FAERS Safety Report 11607529 (Version 1)
Quarter: 2015Q4

REPORT INFORMATION
  Report Type: Spontaneous
  Country: DE (occurrence: DE)
  Receive Date: 20151007
  Receipt Date: 20151007
  Transmission Date: 20160304
  Serious: Yes (Hospitalization)
  Sender: FDA-Public Use
  Company Number: DE-ASTRAZENECA-2015SE94286

PATIENT
  Age: 33 Year
  Sex: Female

DRUGS (22)
  1. ABILIFY MAINTENA [Suspect]
     Active Substance: ARIPIPRAZOLE
     Route: 030
     Dates: start: 20150306
  2. QUETIAPINE [Suspect]
     Active Substance: QUETIAPINE
     Dosage: 125-400 MG, DAILY
     Route: 048
     Dates: start: 20141104, end: 20150212
  3. QUETIAPINE [Suspect]
     Active Substance: QUETIAPINE
     Route: 048
     Dates: start: 20150219, end: 20150304
  4. ABILIFY MAINTENA [Suspect]
     Active Substance: ARIPIPRAZOLE
     Route: 030
     Dates: start: 20150109
  5. BISOPROLOL [Concomitant]
     Active Substance: BISOPROLOL
     Dates: start: 20150302
  6. QUETIAPINE [Suspect]
     Active Substance: QUETIAPINE
     Route: 048
     Dates: start: 20150213, end: 20150218
  7. ABILIFY MAINTENA [Suspect]
     Active Substance: ARIPIPRAZOLE
     Route: 030
     Dates: start: 20141212
  8. ABILIFY MAINTENA [Suspect]
     Active Substance: ARIPIPRAZOLE
     Route: 048
     Dates: start: 20141025, end: 20141218
  9. QUETIAPINE [Suspect]
     Active Substance: QUETIAPINE
     Route: 048
     Dates: start: 20150313, end: 20150317
  10. ABILIFY MAINTENA [Suspect]
     Active Substance: ARIPIPRAZOLE
     Route: 048
     Dates: start: 20141001
  11. ABILIFY MAINTENA [Suspect]
     Active Substance: ARIPIPRAZOLE
     Route: 048
     Dates: start: 20141002, end: 20141024
  12. ABILIFY MAINTENA [Suspect]
     Active Substance: ARIPIPRAZOLE
     Route: 048
     Dates: start: 20141226, end: 20150101
  13. ABILIFY MAINTENA [Suspect]
     Active Substance: ARIPIPRAZOLE
     Route: 048
     Dates: start: 20141222, end: 20141225
  14. L-THYROXIN [Concomitant]
     Active Substance: LEVOTHYROXINE SODIUM
  15. QUETIAPINE [Suspect]
     Active Substance: QUETIAPINE
     Route: 048
     Dates: start: 20141113
  16. QUETIAPINE [Suspect]
     Active Substance: QUETIAPINE
     Route: 048
     Dates: start: 20150305, end: 20150312
  17. QUETIAPINE [Suspect]
     Active Substance: QUETIAPINE
     Route: 048
     Dates: start: 20150121
  18. ABILIFY MAINTENA [Suspect]
     Active Substance: ARIPIPRAZOLE
     Route: 030
     Dates: start: 20150402
  19. ABILIFY MAINTENA [Suspect]
     Active Substance: ARIPIPRAZOLE
     Route: 048
     Dates: start: 20140930
  20. QUETIAPINE [Suspect]
     Active Substance: QUETIAPINE
     Route: 048
     Dates: start: 20150317
  21. ABILIFY MAINTENA [Suspect]
     Active Substance: ARIPIPRAZOLE
     Route: 030
     Dates: start: 20150206
  22. ABILIFY MAINTENA [Suspect]
     Active Substance: ARIPIPRAZOLE
     Route: 048
     Dates: start: 20141219, end: 20141221

REACTIONS (4)
  - Incorrect dose administered [Recovered/Resolved]
  - Sinus tachycardia [Recovered/Resolved]
  - Electrocardiogram T wave abnormal [Unknown]
  - Electrocardiogram ST-T segment abnormal [Unknown]

NARRATIVE: CASE EVENT DATE: 20140904
